FAERS Safety Report 18454570 (Version 1)
Quarter: 2020Q4

REPORT INFORMATION
  Report Type: Spontaneous
  Country: LT (occurrence: LT)
  Receive Date: 20201103
  Receipt Date: 20201103
  Transmission Date: 20210114
  Serious: Yes (Death, Hospitalization, Other)
  Sender: FDA-Public Use
  Company Number: LT-REGENERON PHARMACEUTICALS, INC.-2020-76268

PATIENT

DRUGS (2)
  1. EYLEA [Suspect]
     Active Substance: AFLIBERCEPT
     Indication: RETINAL VEIN OCCLUSION
     Dosage: 50 ?L, ONCE, OU (( TOTAL OF 2 DOSES OF EYLEA)
     Route: 031
     Dates: start: 202002, end: 202002
  2. EYLEA [Suspect]
     Active Substance: AFLIBERCEPT
     Dosage: 50 ?L, ONCE, OU, LAST DOSE PRIOR THE EVENT
     Route: 031
     Dates: start: 202003, end: 202003

REACTIONS (2)
  - Ischaemic stroke [Fatal]
  - Corneal erosion [Unknown]

NARRATIVE: CASE EVENT DATE: 20200905
